FAERS Safety Report 8187705-4 (Version None)
Quarter: 2012Q1

REPORT INFORMATION
  Report Type: 
  Country: None (occurrence: None)
  Receive Date: 20120306
  Receipt Date: 20111212
  Transmission Date: 20120608
  Serious: No
  Sender: FDA-Public Use
  Company Number: US-GLAXOSMITHKLINE-A0958342A

PATIENT
  Age: 44 Year
  Sex: Female
  Weight: 78.2 kg

DRUGS (4)
  1. CLONAZEPAM [Concomitant]
     Indication: ANXIETY
     Dosage: .5MG AS REQUIRED
  2. LAMICTAL [Suspect]
     Indication: DEPRESSION
     Dosage: 200MG PER DAY
     Route: 065
     Dates: start: 20090101
  3. EFFEXOR XR [Suspect]
     Indication: DEPRESSION
     Dosage: 150MG PER DAY
     Route: 065
     Dates: start: 20090101
  4. PROZAC [Suspect]
     Indication: DEPRESSION
     Dosage: 80MG PER DAY
     Dates: start: 20090101

REACTIONS (3)
  - WEIGHT DECREASED [None]
  - WEIGHT INCREASED [None]
  - BLOOD PRESSURE INCREASED [None]
